FAERS Safety Report 20306480 (Version 1)
Quarter: 2022Q1

REPORT INFORMATION
  Report Type: Spontaneous
  Country: US (occurrence: None)
  Receive Date: 20220106
  Receipt Date: 20220106
  Transmission Date: 20220423
  Serious: Yes (Life-Threatening)
  Sender: FDA-Public Use
  Company Number: None

PATIENT
  Age: 37 Year
  Sex: Female

DRUGS (2)
  1. ELURYNG [Suspect]
     Active Substance: ETHINYL ESTRADIOL\ETONOGESTREL
     Indication: Contraception
     Dosage: OTHER QUANTITY : 1 VAGINAL INSERT;?
     Route: 067
     Dates: start: 20210106, end: 20210406
  2. ELURYNG [Suspect]
     Active Substance: ETHINYL ESTRADIOL\ETONOGESTREL
     Indication: Heavy menstrual bleeding

REACTIONS (2)
  - Product substitution issue [None]
  - Migraine [None]

NARRATIVE: CASE EVENT DATE: 20210106
